FAERS Safety Report 16143719 (Version 1)
Quarter: 2019Q2

REPORT INFORMATION
  Report Type: Spontaneous
  Country: CA (occurrence: CA)
  Receive Date: 20190401
  Receipt Date: 20190401
  Transmission Date: 20190711
  Serious: Yes (Other)
  Sender: FDA-Public Use
  Company Number: CA-PFIZER INC-2019130984

PATIENT
  Age: 48 Year
  Sex: Female

DRUGS (1)
  1. DEPO-PROVERA [Suspect]
     Active Substance: MEDROXYPROGESTERONE ACETATE
     Indication: CONTRACEPTION
     Dosage: 150 MG/ML (ALSO REPORTED 1ML INTRAMUSCULAR EACH 12 WEEKS)
     Route: 030
     Dates: start: 1998, end: 2000

REACTIONS (3)
  - Osteoporosis [Unknown]
  - Tibia fracture [Recovered/Resolved]
  - Wrist fracture [Recovering/Resolving]

NARRATIVE: CASE EVENT DATE: 20040729
